FAERS Safety Report 6034736-6 (Version None)
Quarter: 2009Q1

REPORT INFORMATION
  Report Type: 
  Country: None (occurrence: None)
  Receive Date: 20090112
  Receipt Date: 20081231
  Transmission Date: 20090719
  Serious: Yes (Hospitalization)
  Sender: FDA-Public Use
  Company Number: US-PFIZER INC-2009150191

PATIENT
  Sex: Female
  Weight: 53 kg

DRUGS (4)
  1. SUNITINIB MALATE [Suspect]
     Indication: BREAST CANCER
     Dosage: 25 MG, 1X/DAY
     Route: 048
     Dates: start: 20081204, end: 20081226
  2. PACLITAXEL [Suspect]
     Indication: BREAST CANCER
     Dosage: 130 MG, WEEKLY 3 OF 4 WEEKS
     Route: 042
     Dates: start: 20081204, end: 20081230
  3. ATENOLOL [Concomitant]
     Indication: HYPERTENSION
     Dosage: 50 MG, 1X/DAY
     Route: 048
     Dates: start: 20050101
  4. IRBESARTAN [Concomitant]
     Indication: HYPERTENSION
     Dosage: 150 MG, 1X/DAY
     Route: 048
     Dates: start: 20081205

REACTIONS (2)
  - ATRIAL FIBRILLATION [None]
  - DRUG HYPERSENSITIVITY [None]
